FAERS Safety Report 9888227 (Version 1)
Quarter: 2014Q1

REPORT INFORMATION
  Report Type: Spontaneous
  Country: AU (occurrence: None)
  Receive Date: 20140207
  Receipt Date: 20140207
  Transmission Date: 20141002
  Serious: Yes (Other)
  Sender: FDA-Public Use
  Company Number: AU-MDCO-14-00029

PATIENT
  Age: 70 Year
  Sex: Male

DRUGS (1)
  1. ANGIOMAX [Suspect]
     Indication: CORONARY ARTERY BYPASS

REACTIONS (3)
  - Vascular graft thrombosis [None]
  - Off label use [None]
  - Coronary artery bypass [None]
